FAERS Safety Report 17038408 (Version 2)
Quarter: 2019Q4

REPORT INFORMATION
  Report Type: Report from Study
  Country: US (occurrence: US)
  Receive Date: 20191115
  Receipt Date: 20191122
  Transmission Date: 20200122
  Serious: Yes (Hospitalization)
  Sender: FDA-Public Use
  Company Number: US-PFIZER INC-2019481361

PATIENT
  Age: 17 Year
  Sex: Male
  Weight: 80.35 kg

DRUGS (10)
  1. TEMOZOLOMIDE. [Suspect]
     Active Substance: TEMOZOLOMIDE
     Indication: SARCOMA
     Dosage: 200 MG, UNK
     Route: 048
     Dates: start: 20191014, end: 20191018
  2. ZOFRAN [Concomitant]
     Active Substance: ONDANSETRON HYDROCHLORIDE
     Indication: NAUSEA
     Dosage: 4 MG, AS NEEDED
     Dates: start: 20191014
  3. NORCO [Concomitant]
     Active Substance: ACETAMINOPHEN\HYDROCODONE BITARTRATE
     Indication: PAIN
     Dosage: 5 MG, AS NEEDED
     Route: 048
     Dates: start: 20191020
  4. IRINOTECAN HCL [Suspect]
     Active Substance: IRINOTECAN HYDROCHLORIDE
     Indication: SARCOMA
     Dosage: 50 MG, UNK
     Route: 042
     Dates: start: 20191014, end: 20191018
  5. ZOFRAN [Concomitant]
     Active Substance: ONDANSETRON HYDROCHLORIDE
     Dosage: 8 MG, AS NEEDED
     Route: 048
     Dates: start: 20191015
  6. MORPHINE [Concomitant]
     Active Substance: MORPHINE
     Indication: PAIN
     Dosage: 1 MG, AS NEEDED (INSERTION)
     Dates: start: 20191020, end: 20191110
  7. MORPHINE [Concomitant]
     Active Substance: MORPHINE
     Dosage: 4 MG, EVERY 6 HOURS
     Route: 030
     Dates: start: 20191104
  8. PALBOCICLIB [Suspect]
     Active Substance: PALBOCICLIB
     Indication: SARCOMA
     Dosage: 150 MG, UNK
     Route: 048
     Dates: start: 20191014, end: 20191027
  9. LEVOFLOXACIN. [Concomitant]
     Active Substance: LEVOFLOXACIN
     Indication: PROPHYLAXIS AGAINST DIARRHOEA
     Dosage: 500 MG, DAILY
     Route: 048
     Dates: start: 20191019
  10. BACTRIM [Concomitant]
     Active Substance: SULFAMETHOXAZOLE\TRIMETHOPRIM
     Indication: INFECTION PROPHYLAXIS
     Dosage: 160 MG, 2 TIMES DAILY ON 2 DAYS PER WEEKS
     Route: 048
     Dates: start: 20191019

REACTIONS (1)
  - Febrile neutropenia [Recovered/Resolved]

NARRATIVE: CASE EVENT DATE: 20191104
